FAERS Safety Report 18043896 (Version 1)
Quarter: 2020Q3

REPORT INFORMATION
  Report Type: Spontaneous
  Country: US (occurrence: US)
  Receive Date: 20200717
  Receipt Date: 20200717
  Transmission Date: 20201103
  Serious: Yes (Hospitalization)
  Sender: FDA-Public Use
  Company Number: None

PATIENT
  Age: 52 Year
  Sex: Male

DRUGS (13)
  1. TACROLIMUS. [Suspect]
     Active Substance: TACROLIMUS
  2. HYDROCHLOROT [Suspect]
     Active Substance: HYDROCHLOROTHIAZIDE
  3. CLOPIDOGREL [Suspect]
     Active Substance: CLOPIDOGREL BISULFATE
  4. FOLIC ACID. [Suspect]
     Active Substance: FOLIC ACID
  5. SERTRALINE [Suspect]
     Active Substance: SERTRALINE HYDROCHLORIDE
  6. CARVEDILOL. [Suspect]
     Active Substance: CARVEDILOL
  7. AMLODIPINE [Suspect]
     Active Substance: AMLODIPINE BESYLATE
  8. ATORVASTATIN [Suspect]
     Active Substance: ATORVASTATIN
  9. FENOFIBRATE. [Suspect]
     Active Substance: FENOFIBRATE
  10. HYZAAR [Suspect]
     Active Substance: HYDROCHLOROTHIAZIDE\LOSARTAN POTASSIUM
  11. LOSARTAN POT [Suspect]
     Active Substance: LOSARTAN POTASSIUM
  12. PLAVIX [Suspect]
     Active Substance: CLOPIDOGREL BISULFATE
  13. ZORTRESS [Suspect]
     Active Substance: EVEROLIMUS
     Indication: HEART TRANSPLANT
     Route: 048
     Dates: start: 20190118

REACTIONS (1)
  - Cardiac disorder [None]

NARRATIVE: CASE EVENT DATE: 20200711
